FAERS Safety Report 4340618-8 (Version None)
Quarter: 2004Q2

REPORT INFORMATION
  Report Type: 
  Country: None (occurrence: None)
  Receive Date: 20040414
  Receipt Date: 20040331
  Transmission Date: 20050107
  Serious: Yes (Other)
  Sender: FDA-Public Use
  Company Number: 2004-DE-01881GD

PATIENT

DRUGS (1)
  1. MELOXICAM (MELOXICAM) (NR) [Suspect]

REACTIONS (13)
  - CARDIAC ARREST [None]
  - CARDIOVASCULAR DISORDER [None]
  - CEREBRAL ARTERY EMBOLISM [None]
  - CEREBRAL THROMBOSIS [None]
  - CEREBROVASCULAR ACCIDENT [None]
  - CEREBROVASCULAR DISORDER [None]
  - DEEP VEIN THROMBOSIS [None]
  - EMBOLISM [None]
  - MYOCARDIAL INFARCTION [None]
  - PERIPHERAL VASCULAR DISORDER [None]
  - PULMONARY EMBOLISM [None]
  - PULMONARY INFARCTION [None]
  - TRANSIENT ISCHAEMIC ATTACK [None]
